FAERS Safety Report 4907149-5 (Version None)
Quarter: 2006Q1

REPORT INFORMATION
  Report Type: 
  Country: None (occurrence: None)
  Receive Date: 20060206
  Receipt Date: 20060124
  Transmission Date: 20060701
  Serious: Yes (Death, Other)
  Sender: FDA-Public Use
  Company Number: 2006012873

PATIENT
  Sex: Male

DRUGS (4)
  1. VFEND [Suspect]
     Indication: SYSTEMIC CANDIDA
     Dosage: 400 MG, INTRAVENOUS
     Route: 042
     Dates: start: 20051207, end: 20060121
  2. FOSFLUCONAZOLE (FOSFLUCONAZOLE) [Concomitant]
  3. MICAFUNGIN (MICAFUNGIN) [Concomitant]
  4. MAXIPIME [Concomitant]

REACTIONS (3)
  - CARDIAC ARREST [None]
  - RENAL FAILURE ACUTE [None]
  - RESPIRATORY FAILURE [None]
